FAERS Safety Report 21071746 (Version 34)
Quarter: 2025Q3

REPORT INFORMATION
  Report Type: Report from Study
  Country: CA (occurrence: CA)
  Receive Date: 20220712
  Receipt Date: 20250902
  Transmission Date: 20251020
  Serious: Yes (Death, Hospitalization, Other)
  Sender: TAKEDA
  Company Number: CA-TAKEDA-2022TUS045762

PATIENT
  Age: 76 Year
  Sex: Male

DRUGS (6)
  1. IXAZOMIB [Suspect]
     Active Substance: IXAZOMIB
     Indication: Plasma cell myeloma
  2. IXAZOMIB [Suspect]
     Active Substance: IXAZOMIB
  3. IXAZOMIB [Suspect]
     Active Substance: IXAZOMIB
  4. IXAZOMIB [Suspect]
     Active Substance: IXAZOMIB
  5. ARANESP [Concomitant]
     Active Substance: DARBEPOETIN ALFA
  6. ACYCLOVIR [Concomitant]
     Active Substance: ACYCLOVIR

REACTIONS (12)
  - Death [Fatal]
  - Bacteraemia [Unknown]
  - Thrombosis [Unknown]
  - Clostridium difficile infection [Unknown]
  - Pneumonia [Unknown]
  - Full blood count decreased [Unknown]
  - Platelet count abnormal [Unknown]
  - Blood test abnormal [Unknown]
  - Inappropriate schedule of product administration [Unknown]
  - Product dose omission issue [Unknown]
  - Off label use [Unknown]
  - Platelet count decreased [Unknown]

NARRATIVE: CASE EVENT DATE: 20250801
